APPROVED DRUG PRODUCT: SILDENAFIL CITRATE
Active Ingredient: SILDENAFIL CITRATE
Strength: EQ 10MG BASE/ML
Dosage Form/Route: FOR SUSPENSION;ORAL
Application: A215522 | Product #001
Applicant: TARO PHARMACEUTICAL INDUSTRIES LTD
Approved: Nov 16, 2021 | RLD: No | RS: No | Type: DISCN